FAERS Safety Report 5097146-4 (Version None)
Quarter: 2006Q3

REPORT INFORMATION
  Report Type: 
  Country: None (occurrence: None)
  Receive Date: 20060829
  Receipt Date: 20060811
  Transmission Date: 20061208
  Serious: Yes (Other)
  Sender: FDA-Public Use
  Company Number: CHNY2006JP02411

PATIENT
  Sex: Male

DRUGS (1)
  1. NICOTINE [Suspect]
     Indication: SMOKING CESSATION THERAPY
     Dosage: 21 MG, QD, TRANSDERMAL
     Route: 062

REACTIONS (5)
  - CHEST X-RAY ABNORMAL [None]
  - HEPATIC FUNCTION ABNORMAL [None]
  - INFECTION [None]
  - MALAISE [None]
  - PYREXIA [None]
